FAERS Safety Report 9770271 (Version 1)
Quarter: 2013Q4

REPORT INFORMATION
  Report Type: Spontaneous
  Country: GB (occurrence: GB)
  Receive Date: 20131218
  Receipt Date: 20131218
  Transmission Date: 20140711
  Serious: Yes (Other)
  Sender: FDA-Public Use
  Company Number: GB-MERCK-1312GBR006649

PATIENT
  Age: 46 Year
  Sex: Male
  Weight: 70.9 kg

DRUGS (1)
  1. SITAGLIPTIN PHOSPHATE [Suspect]
     Dosage: 100 MG, 1/1 DAYS
     Route: 048
     Dates: start: 20130306, end: 20131113

REACTIONS (2)
  - Ear pain [Recovered/Resolved]
  - Oropharyngeal pain [Recovered/Resolved]
